FAERS Safety Report 6557177-1 (Version None)
Quarter: 2010Q1

REPORT INFORMATION
  Report Type: 
  Country: None (occurrence: None)
  Receive Date: 20100127
  Receipt Date: 20100127
  Transmission Date: 20100710
  Serious: Yes (Hospitalization)
  Sender: FDA-Public Use
  Company Number: None

PATIENT
  Sex: Male
  Weight: 85.6 kg

DRUGS (3)
  1. CISPLATIN [Suspect]
     Dosage: 122 MG
  2. ERBITUX [Suspect]
     Dosage: 1020 MG
  3. CAMPTOSAR [Suspect]
     Dosage: 200 MG

REACTIONS (3)
  - APNOEA [None]
  - PULMONARY EMBOLISM [None]
  - SYNCOPE [None]
